FAERS Safety Report 12692799 (Version 2)
Quarter: 2016Q3

REPORT INFORMATION
  Report Type: Spontaneous
  Country: US (occurrence: US)
  Receive Date: 20160829
  Receipt Date: 20160929
  Transmission Date: 20161109
  Serious: Yes (Hospitalization)
  Sender: FDA-Public Use
  Company Number: US-PFIZER INC-2016394715

PATIENT
  Age: 69 Year
  Sex: Female
  Weight: 63.5 kg

DRUGS (5)
  1. INLYTA [Suspect]
     Active Substance: AXITINIB
     Indication: RENAL CELL CARCINOMA
     Dosage: 3 MG, 1X/DAY (THREE 1 MG TABLETS IN THE MORNING)
     Dates: start: 20160919
  2. ZETIA [Concomitant]
     Active Substance: EZETIMIBE
     Indication: BLOOD CHOLESTEROL ABNORMAL
     Dosage: 10MG WHITE PILL, ONCE A DAY AT NIGHT
     Route: 048
     Dates: start: 2016
  3. INLYTA [Suspect]
     Active Substance: AXITINIB
     Indication: CLEAR CELL RENAL CELL CARCINOMA
     Dosage: 3MG TWICE A DAY, PILL FORM, THREE IN THE MORNING AND THREE AT NIGHT
     Route: 048
     Dates: start: 201606, end: 20160818
  4. NORVASC [Concomitant]
     Active Substance: AMLODIPINE BESYLATE
     Indication: BLOOD PRESSURE ABNORMAL
     Dosage: 5MG ONCE A DAY
     Dates: start: 2016
  5. LASIX [Concomitant]
     Active Substance: FUROSEMIDE
     Indication: SWELLING
     Dosage: 20MG PILL, PRN
     Route: 048
     Dates: start: 201606

REACTIONS (9)
  - Cognitive disorder [Recovering/Resolving]
  - Confusional state [Recovering/Resolving]
  - Diarrhoea [Not Recovered/Not Resolved]
  - Memory impairment [Not Recovered/Not Resolved]
  - Chondrocalcinosis pyrophosphate [Recovering/Resolving]
  - Joint swelling [Recovered/Resolved]
  - Aphasia [Recovering/Resolving]
  - Arthralgia [Recovered/Resolved]
  - Weight decreased [Not Recovered/Not Resolved]

NARRATIVE: CASE EVENT DATE: 2016
